FAERS Safety Report 9828751 (Version 1)
Quarter: 2014Q1

REPORT INFORMATION
  Report Type: Spontaneous
  Country: US (occurrence: US)
  Receive Date: 20140117
  Receipt Date: 20140117
  Transmission Date: 20141002
  Serious: Yes (Other)
  Sender: FDA-Public Use
  Company Number: US-B.I. PHARMACEUTICALS,INC./RIDGEFIELD-2014-BI-02328YA

PATIENT
  Age: 59 Year
  Sex: Male

DRUGS (2)
  1. TAMSULOSIN CAPSULES [Suspect]
     Indication: BENIGN PROSTATIC HYPERPLASIA
     Route: 048
  2. TAMSULOSIN CAPSULES [Suspect]
     Dosage: 0.4 MG
     Route: 048

REACTIONS (1)
  - Conjunctivitis [Unknown]
